FAERS Safety Report 6185991-3 (Version None)
Quarter: 2009Q2

REPORT INFORMATION
  Report Type: 
  Country: None (occurrence: None)
  Receive Date: 20090511
  Receipt Date: 20090506
  Transmission Date: 20091009
  Serious: Yes (Other)
  Sender: FDA-Public Use
  Company Number: RO-PFIZER INC-2009206004

PATIENT
  Age: 54 Year

DRUGS (5)
  1. SORTIS [Suspect]
     Indication: DYSLIPIDAEMIA
     Route: 048
     Dates: start: 20090220, end: 20090318
  2. METOPROLOL [Concomitant]
     Dosage: 50 MG, 2X/DAY
     Route: 048
  3. INDAPAMIDE [Concomitant]
     Dosage: UNK
     Route: 048
  4. NICERGOLINE [Concomitant]
     Dosage: UNK
     Route: 048
  5. ACETYLSALICYLIC ACID [Concomitant]
     Dosage: 75 MG, UNK
     Route: 048

REACTIONS (2)
  - EYELID OEDEMA [None]
  - LARYNGEAL OEDEMA [None]
